FAERS Safety Report 25870194 (Version 1)
Quarter: 2025Q4

REPORT INFORMATION
  Report Type: Spontaneous
  Country: US (occurrence: None)
  Receive Date: 20251001
  Receipt Date: 20251001
  Transmission Date: 20260118
  Serious: No
  Sender: FDA-CTU
  Company Number: None

PATIENT

DRUGS (2)
  1. BENLYSTA [Suspect]
     Active Substance: BELIMUMAB
  2. ESCITALOPRAM [Suspect]
     Active Substance: ESCITALOPRAM OXALATE

REACTIONS (7)
  - Muscular weakness [None]
  - Balance disorder [None]
  - Feeling hot [None]
  - Incorrect dose administered [None]
  - Hyperhidrosis [None]
  - Drug interaction [None]
  - Back pain [None]
